FAERS Safety Report 5745143-5 (Version None)
Quarter: 2008Q2

REPORT INFORMATION
  Report Type: 
  Country: None (occurrence: None)
  Receive Date: 20080521
  Receipt Date: 20080509
  Transmission Date: 20081010
  Serious: Yes (Other)
  Sender: FDA-Public Use
  Company Number: PHHY2008GB07785

PATIENT
  Sex: Female

DRUGS (1)
  1. TEGRETOL [Suspect]
     Dates: start: 20060101

REACTIONS (1)
  - DYSPHAGIA [None]
